FAERS Safety Report 18469695 (Version 3)
Quarter: 2021Q1

REPORT INFORMATION
  Report Type: Spontaneous
  Country: JP (occurrence: JP)
  Receive Date: 20201105
  Receipt Date: 20210208
  Transmission Date: 20210419
  Serious: Yes (Life-Threatening)
  Sender: FDA-Public Use
  Company Number: JP-ALLERGAN-2041471US

PATIENT
  Sex: Female

DRUGS (8)
  1. ASENAPINE MALEATE ? BP [Suspect]
     Active Substance: ASENAPINE MALEATE
     Indication: SCHIZOPHRENIA
     Dosage: 5 MG, PRN
     Route: 060
     Dates: start: 20201016, end: 20201016
  2. BLONANSERIN [Concomitant]
     Active Substance: BLONANSERIN
     Dosage: 24 MG IN 2 DIVIDED DOSES
     Dates: end: 20201011
  3. LATUDA [Suspect]
     Active Substance: LURASIDONE HYDROCHLORIDE
     Dosage: 40 MG, QD
     Route: 048
     Dates: start: 20201009, end: 20201011
  4. BLONANSERIN [Concomitant]
     Active Substance: BLONANSERIN
     Dosage: 16 MG IN 2 DIVIDED DOSES
     Dates: start: 20201012
  5. ESOMEPRAZOLE MAGNESIUM. [Concomitant]
     Active Substance: ESOMEPRAZOLE MAGNESIUM
     Dosage: UNK
     Dates: start: 20201009
  6. LATUDA [Suspect]
     Active Substance: LURASIDONE HYDROCHLORIDE
     Indication: SCHIZOPHRENIA
     Dosage: 80 MG, QD
     Route: 048
     Dates: start: 20201012, end: 20201016
  7. CLONAZEPAM. [Concomitant]
     Active Substance: CLONAZEPAM
     Dosage: UNK
  8. LAMOTRIGINE. [Concomitant]
     Active Substance: LAMOTRIGINE
     Dosage: UNK

REACTIONS (2)
  - Off label use [Unknown]
  - Sinus bradycardia [Recovered/Resolved]

NARRATIVE: CASE EVENT DATE: 20201017
